FAERS Safety Report 6841752-0 (Version None)
Quarter: 2010Q3

REPORT INFORMATION
  Report Type: 
  Country: None (occurrence: None)
  Receive Date: 20100714
  Receipt Date: 20070712
  Transmission Date: 20110219
  Serious: No
  Sender: FDA-Public Use
  Company Number: US-PFIZER INC-2007059553

PATIENT
  Sex: Female
  Weight: 100 kg

DRUGS (6)
  1. CHANTIX [Suspect]
     Indication: SMOKING CESSATION THERAPY
     Dates: start: 20070101
  2. FOLIC ACID [Concomitant]
  3. VALSARTAN [Concomitant]
  4. DILTIAZEM [Concomitant]
  5. METOPROLOL [Concomitant]
  6. QUININE [Concomitant]
     Indication: MUSCLE SPASMS

REACTIONS (2)
  - ABNORMAL DREAMS [None]
  - DRUG INEFFECTIVE [None]
